FAERS Safety Report 9257217 (Version 1)
Quarter: 2013Q2

REPORT INFORMATION
  Report Type: Spontaneous
  Country: GB (occurrence: GB)
  Receive Date: 20130426
  Receipt Date: 20130426
  Transmission Date: 20140414
  Serious: Yes (Other)
  Sender: FDA-Public Use
  Company Number: PHFR2013GB002231

PATIENT
  Age: 26 Year
  Sex: Male

DRUGS (1)
  1. CLOZARIL [Suspect]
     Indication: SCHIZOPHRENIA
     Dosage: UNK
     Route: 048
     Dates: start: 20130327

REACTIONS (3)
  - Differential white blood cell count abnormal [Not Recovered/Not Resolved]
  - Eosinophil count increased [Unknown]
  - White blood cell count increased [Unknown]
